FAERS Safety Report 16942502 (Version 2)
Quarter: 2019Q4

REPORT INFORMATION
  Report Type: Spontaneous
  Country: PE (occurrence: PE)
  Receive Date: 20191021
  Receipt Date: 20191030
  Transmission Date: 20200122
  Serious: Yes (Death)
  Sender: FDA-Public Use
  Company Number: PE-009507513-1910PER012338

PATIENT
  Age: 60 Year
  Sex: Male

DRUGS (3)
  1. PEMBROLIZUMAB. [Suspect]
     Active Substance: PEMBROLIZUMAB
  2. CARBOPLATIN. [Suspect]
     Active Substance: CARBOPLATIN
  3. PACLITAXEL. [Suspect]
     Active Substance: PACLITAXEL

REACTIONS (1)
  - Pneumonitis [Fatal]
